FAERS Safety Report 21265014 (Version 1)
Quarter: 2022Q3

REPORT INFORMATION
  Report Type: Spontaneous
  Country: US (occurrence: None)
  Receive Date: 20220826
  Receipt Date: 20220826
  Transmission Date: 20221027
  Serious: No
  Sender: FDA-Public Use
  Company Number: None

PATIENT
  Age: 43 Year
  Sex: Male
  Weight: 125.64 kg

DRUGS (1)
  1. NIRMATRELVIR\RITONAVIR [Suspect]
     Active Substance: NIRMATRELVIR\RITONAVIR

REACTIONS (4)
  - Rash pruritic [None]
  - Eyelid oedema [None]
  - Mucosal inflammation [None]
  - Rash vesicular [None]

NARRATIVE: CASE EVENT DATE: 20220822
